FAERS Safety Report 5009218-0 (Version None)
Quarter: 2006Q2

REPORT INFORMATION
  Report Type: 
  Country: None (occurrence: None)
  Receive Date: 20060519
  Receipt Date: 20060505
  Transmission Date: 20061013
  Serious: Yes (Life-Threatening)
  Sender: FDA-Public Use
  Company Number: 230008M06CAN

PATIENT
  Age: 41 Year
  Sex: Female

DRUGS (4)
  1. REBIF [Suspect]
     Dosage: 22 MCG, 3 IN 1 WEEKS, SUBCUTANEOUS
     Route: 058
     Dates: start: 20050208, end: 20050331
  2. BACLOFEN [Concomitant]
  3. NORTRIPTYLINE HCL [Concomitant]
  4. QUETIAPINE FUMARATE [Concomitant]

REACTIONS (6)
  - CHOKING [None]
  - HYPERSENSITIVITY [None]
  - ILL-DEFINED DISORDER [None]
  - LOCAL SWELLING [None]
  - RASH PRURITIC [None]
  - SKIN TEST POSITIVE [None]
